FAERS Safety Report 6059881-0 (Version None)
Quarter: 2009Q1

REPORT INFORMATION
  Report Type: 
  Country: None (occurrence: None)
  Receive Date: 20090130
  Receipt Date: 20081119
  Transmission Date: 20090719
  Serious: No
  Sender: FDA-Public Use
  Company Number: US-ABBOTT-08P-163-0489055-00

PATIENT
  Sex: Male

DRUGS (7)
  1. LUPRON [Suspect]
     Indication: PROSTATE CANCER
  2. ALENDRONATE SODIUM [Concomitant]
     Indication: PROPHYLAXIS
  3. ALENDRONATE SODIUM [Concomitant]
     Indication: METASTASES TO BONE
  4. CALCIUM GLUCONATE [Concomitant]
     Indication: METASTASES TO BONE
  5. CALCIUM GLUCONATE [Concomitant]
     Indication: PROPHYLAXIS
  6. ERGOCALCIFEROL [Concomitant]
     Indication: PROPHYLAXIS
  7. ERGOCALCIFEROL [Concomitant]
     Indication: METASTASES TO BONE

REACTIONS (1)
  - OSTEOPENIA [None]
